APPROVED DRUG PRODUCT: MINOXIDIL EXTRA STRENGTH (FOR MEN)
Active Ingredient: MINOXIDIL
Strength: 5%
Dosage Form/Route: SOLUTION;TOPICAL
Application: A075737 | Product #001
Applicant: PERRIGO NEW YORK INC
Approved: Mar 15, 2002 | RLD: No | RS: No | Type: DISCN